FAERS Safety Report 17825637 (Version 2)
Quarter: 2020Q2

REPORT INFORMATION
  Report Type: Report from Study
  Country: US (occurrence: US)
  Receive Date: 20200526
  Receipt Date: 20200629
  Transmission Date: 20200714
  Serious: Yes (Other)
  Sender: FDA-Public Use
  Company Number: US-PFIZER INC-2020190601

PATIENT
  Age: 56 Year
  Sex: Female

DRUGS (3)
  1. ANASTROZOLE. [Concomitant]
     Active Substance: ANASTROZOLE
     Dosage: UNK, DAILY
  2. IBRANCE [Suspect]
     Active Substance: PALBOCICLIB
     Dosage: 125 MG, CYCLIC(DAILY 21 DAYS, OFF 7 DAYS)
     Route: 048
  3. IBRANCE [Suspect]
     Active Substance: PALBOCICLIB
     Indication: BREAST CANCER FEMALE
     Dosage: 125 MG, CYCLIC(DAILY 21 DAYS, OFF 7 DAYS)
     Route: 048
     Dates: start: 20200425, end: 20200515

REACTIONS (3)
  - Constipation [Unknown]
  - Bone marrow failure [Unknown]
  - Nausea [Unknown]

NARRATIVE: CASE EVENT DATE: 2020
